FAERS Safety Report 19929412 (Version 1)
Quarter: 2021Q4

REPORT INFORMATION
  Report Type: Spontaneous
  Country: CZ (occurrence: CZ)
  Receive Date: 20211007
  Receipt Date: 20211007
  Transmission Date: 20220303
  Serious: Yes (Other)
  Sender: FDA-Public Use
  Company Number: CZ-BRISTOL-MYERS SQUIBB COMPANY-BMS-2021-099414

PATIENT
  Age: 71 Year
  Sex: Female

DRUGS (1)
  1. NIVOLUMAB [Suspect]
     Active Substance: NIVOLUMAB
     Indication: Renal cell carcinoma
     Dosage: UNK
     Route: 065
     Dates: start: 2020

REACTIONS (7)
  - Vaginal haemorrhage [Unknown]
  - Stress cardiomyopathy [Unknown]
  - Hypothyroidism [Unknown]
  - Endometrial adenocarcinoma [Unknown]
  - Vaginal lesion [Unknown]
  - Lung disorder [Unknown]
  - Back pain [Unknown]
